FAERS Safety Report 8896428 (Version 1)
Quarter: 2012Q4

REPORT INFORMATION
  Report Type: Spontaneous
  Country: US (occurrence: None)
  Receive Date: 20121107
  Receipt Date: 20121107
  Transmission Date: 20130627
  Serious: No
  Sender: FDA-Public Use
  Company Number: None

PATIENT
  Age: 25 Year
  Sex: Male
  Weight: 74.84 kg

DRUGS (1)
  1. ESCITALOPRAM [Suspect]

REACTIONS (6)
  - Insomnia [None]
  - Restlessness [None]
  - Disturbance in attention [None]
  - Fatigue [None]
  - Product quality issue [None]
  - Product substitution issue [None]
